FAERS Safety Report 9463530 (Version 1)
Quarter: 2013Q3

REPORT INFORMATION
  Report Type: Spontaneous
  Country: JP (occurrence: JP)
  Receive Date: 20130819
  Receipt Date: 20130819
  Transmission Date: 20140515
  Serious: Yes (Hospitalization)
  Sender: FDA-Public Use
  Company Number: JP-009507513-1308JPN007181

PATIENT
  Age: 60 Year
  Sex: Male

DRUGS (7)
  1. EMEND [Suspect]
     Indication: PROPHYLAXIS OF NAUSEA AND VOMITING
     Dosage: DAILY DOSE: 125 MG
     Route: 048
     Dates: start: 20130806, end: 20130806
  2. EMEND [Suspect]
     Dosage: DAILY DOSE: 80 MG
     Route: 048
     Dates: start: 20130807, end: 20130808
  3. PRIMPERAN [Suspect]
     Dosage: UNK UNK, BID
     Route: 048
     Dates: start: 20130808, end: 20130809
  4. CARBOPLATIN [Concomitant]
     Dosage: UNK
     Dates: start: 20130806, end: 20130806
  5. PACLITAXEL [Concomitant]
     Dosage: UNK
     Dates: start: 20130806, end: 20130806
  6. ALOXI [Concomitant]
     Dosage: UNK
     Dates: start: 20130806, end: 20130806
  7. DECADRON PHOSPHATE INJECTION [Concomitant]
     Dosage: UNK
     Dates: start: 20130806, end: 20130806

REACTIONS (1)
  - Akathisia [Recovered/Resolved]
